FAERS Safety Report 4953377-2 (Version None)
Quarter: 2006Q1

REPORT INFORMATION
  Report Type: 
  Country: None (occurrence: None)
  Receive Date: 20060324
  Receipt Date: 20060315
  Transmission Date: 20060701
  Serious: Yes (Hospitalization)
  Sender: FDA-Public Use
  Company Number: KR-BRISTOL-MYERS SQUIBB COMPANY-13314844

PATIENT
  Age: 66 Year
  Sex: Female

DRUGS (7)
  1. CISPLATIN [Suspect]
     Indication: NEOPLASM MALIGNANT
     Route: 042
     Dates: start: 20060112, end: 20060112
  2. PACLITAXEL [Suspect]
     Indication: NEOPLASM MALIGNANT
     Route: 042
     Dates: start: 20060112, end: 20060112
  3. MISOPROSTOL [Concomitant]
     Dates: start: 20060112, end: 20060202
  4. OXYCODONE HCL [Concomitant]
     Dates: start: 20060112, end: 20060202
  5. CODEINE PHOSPHATE [Concomitant]
     Dates: start: 20051226, end: 20060115
  6. IBUPROFEN [Concomitant]
     Dates: start: 20051226, end: 20060115
  7. ACETAMINOPHEN [Concomitant]
     Dates: start: 20051226, end: 20060115

REACTIONS (1)
  - ANOREXIA [None]
